FAERS Safety Report 8595657-8 (Version None)
Quarter: 2012Q3

REPORT INFORMATION
  Report Type: 
  Country: None (occurrence: None)
  Receive Date: 20120815
  Receipt Date: 20120810
  Transmission Date: 20120928
  Serious: Yes (Hospitalization, Other)
  Sender: FDA-Public Use
  Company Number: US-PFIZER INC-2012195942

PATIENT
  Age: 46 Year
  Sex: Male
  Weight: 99.3 kg

DRUGS (3)
  1. NEURONTIN [Suspect]
     Indication: NEUROPATHY PERIPHERAL
     Dosage: 2400 MG, 2X/DAY
     Dates: start: 20000101
  2. AMITRIPTYLINE [Concomitant]
     Dosage: 30 MG, DAILY
  3. METOCLOPRAMIDE [Concomitant]
     Dosage: 10 MG, 2X/DAY

REACTIONS (1)
  - DIVERTICULITIS [None]
